FAERS Safety Report 4561404-X (Version None)
Quarter: 2005Q1

REPORT INFORMATION
  Report Type: 
  Country: None (occurrence: None)
  Receive Date: 20050126
  Receipt Date: 20050121
  Transmission Date: 20050727
  Serious: Yes (Hospitalization)
  Sender: FDA-Public Use
  Company Number: PHRM2005FR00611

PATIENT
  Age: 73 Year
  Sex: Male

DRUGS (7)
  1. TEGRETOL [Suspect]
     Dosage: 200 MG, BID
     Route: 048
  2. LASILIX [Suspect]
     Dosage: 60 MG/DAY
     Route: 048
  3. TRILEPTAL [Suspect]
     Dosage: 150 MG, TID
     Route: 048
  4. SINTROM 4 [Suspect]
     Dosage: 4 MG/DAY
     Route: 048
  5. LEVOTHYROXINE SODIUM [Suspect]
     Dosage: 25 UG/DAY
     Route: 048
  6. TRIATEC [Suspect]
     Dosage: 2.5 MG, BID
     Route: 048
  7. ALDACTONE [Suspect]
     Dosage: 12.5 MG/DAY
     Route: 048

REACTIONS (5)
  - HAEMOGLOBIN DECREASED [None]
  - HYPOCHROMIC ANAEMIA [None]
  - LEUKOPENIA [None]
  - LYMPHOPENIA [None]
  - NEUTROPENIA [None]
